FAERS Safety Report 16794002 (Version 1)
Quarter: 2019Q3

REPORT INFORMATION
  Report Type: Spontaneous
  Country: US (occurrence: US)
  Receive Date: 20190911
  Receipt Date: 20190911
  Transmission Date: 20191005
  Serious: No
  Sender: FDA-Public Use
  Company Number: US-009507513-1908USA006386

PATIENT
  Age: 76 Year
  Sex: Female
  Weight: 51 kg

DRUGS (15)
  1. ELIQUIS [Concomitant]
     Active Substance: APIXABAN
     Dosage: 5 MILLIGRAM, BID
     Route: 048
  2. CALCIUM CARBONATE (+) CHOLECALCIFEROL [Concomitant]
     Active Substance: CALCIUM CARBONATE\CHOLECALCIFEROL
     Dosage: 1 DOSAGE FORM, QD
     Route: 048
  3. NEURONTIN [Concomitant]
     Active Substance: GABAPENTIN
     Dosage: TAKE 1 CAPSULE BY MOUTH 2 TIMES DAILY. (PATIENT TAKING DIFFERENTLY; TAKE 100 MG BY MOUTH 4 TIMES DAI
     Route: 048
  4. MIRALAX [Concomitant]
     Active Substance: POLYETHYLENE GLYCOL 3350
     Indication: CONSTIPATION
     Dosage: 17 GRAM, 2 TIMES DAILY AS NEEDED
     Route: 048
  5. SIMETHICONE (DIMETHICONE) [Concomitant]
     Active Substance: DIMETHICONE
     Dosage: 1 DOSAGE FORM, 4 TIMES DAILY AS NEEDED
     Route: 048
  6. CALCIUM ASCORBATE [Concomitant]
     Active Substance: CALCIUM ASCORBATE
     Dosage: 1 DOSAGE FORM, QD
     Route: 048
  7. BUMEX [Concomitant]
     Active Substance: BUMETANIDE
     Dosage: 1 DOSAGE FORM, QD
     Route: 048
  8. OXYCODONE [Concomitant]
     Active Substance: OXYCODONE
     Dosage: UNK
     Route: 048
  9. ASPIRIN. [Concomitant]
     Active Substance: ASPIRIN
     Dosage: 81 MILLIGRAM, QD
     Route: 048
  10. VITAMIN E ACETATE [Concomitant]
     Active Substance: .ALPHA.-TOCOPHEROL ACETATE
     Dosage: 1 DOSAGE FORM, QD
     Route: 048
  11. XANAX [Concomitant]
     Active Substance: ALPRAZOLAM
     Dosage: 0.5 MILLIGRAM, HS
     Route: 048
  12. ZESTRIL [Concomitant]
     Active Substance: LISINOPRIL
     Dosage: 2.5 MILLIGRAM, QD
     Route: 048
  13. TYLENOL EXTRA STRENGTH [Concomitant]
     Active Substance: ACETAMINOPHEN
     Indication: BREAKTHROUGH PAIN
     Dosage: 500 MILLIGRAM, EVERY 6 HOURS AS NEEDED
     Route: 048
  14. PRINIVIL [Suspect]
     Active Substance: LISINOPRIL
     Dosage: 2.5 MILLIGRAM, QD
     Route: 048
  15. PROAIR HFA [Concomitant]
     Active Substance: ALBUTEROL SULFATE
     Dosage: 2 DOSAGE FORM, EVERY 4 HOURS AS NEEDED
     Route: 055

REACTIONS (3)
  - Metabolic function test abnormal [Unknown]
  - Light chain analysis abnormal [Unknown]
  - Troponin increased [Unknown]

NARRATIVE: CASE EVENT DATE: 20190610
